FAERS Safety Report 6427795-X (Version None)
Quarter: 2009Q4

REPORT INFORMATION
  Report Type: 
  Country: None (occurrence: None)
  Receive Date: 20091104
  Receipt Date: 20091104
  Transmission Date: 20100525
  Serious: Yes (Hospitalization, Disabling, Other)
  Sender: FDA-Public Use
  Company Number: None

PATIENT
  Age: 48 Year
  Sex: Male
  Weight: 98.4306 kg

DRUGS (1)
  1. DOXYCYCLINE HYCLATE [Suspect]
     Indication: ROSACEA
     Dosage: 1 CAP DAILY
     Dates: start: 20091008, end: 20091020

REACTIONS (4)
  - CONVULSION [None]
  - DIARRHOEA [None]
  - HEADACHE [None]
  - VISION BLURRED [None]
